FAERS Safety Report 9070178 (Version 2)
Quarter: 2013Q1

REPORT INFORMATION
  Report Type: Spontaneous
  Country: US (occurrence: US)
  Receive Date: 20130129
  Receipt Date: 20130207
  Transmission Date: 20140127
  Serious: Yes (Death, Hospitalization)
  Sender: FDA-Public Use
  Company Number: US-GILEAD-2012-0063446

PATIENT
  Sex: Male

DRUGS (10)
  1. LETAIRIS [Suspect]
     Indication: PULMONARY ARTERIAL HYPERTENSION
     Dosage: 10 MG, UNK
     Route: 048
     Dates: start: 20090202
  2. SILDENAFIL [Concomitant]
  3. VELETRI [Concomitant]
  4. DIGOXIN [Concomitant]
  5. LASIX                              /00032601/ [Concomitant]
  6. LEVOTHYROXINE [Concomitant]
  7. METOLAZONE [Concomitant]
  8. SPIRONOLACTONE [Concomitant]
  9. KCL [Concomitant]
  10. CALCIUM CARBONATE [Concomitant]

REACTIONS (5)
  - Right ventricular failure [Fatal]
  - Blood pressure decreased [Unknown]
  - Hypoperfusion [Unknown]
  - Fluid overload [Unknown]
  - Atrial fibrillation [Unknown]
